FAERS Safety Report 8043125-4 (Version None)
Quarter: 2012Q1

REPORT INFORMATION
  Report Type: 
  Country: None (occurrence: None)
  Receive Date: 20120112
  Receipt Date: 20120106
  Transmission Date: 20120608
  Serious: Yes (Hospitalization)
  Sender: FDA-Public Use
  Company Number: US-B.I. PHARMACEUTICALS,INC./RIDGEFIELD-2011-BP-28078BP

PATIENT
  Sex: Male
  Weight: 53.07 kg

DRUGS (1)
  1. PRADAXA [Suspect]
     Indication: ATRIAL FIBRILLATION
     Dosage: 150 MG
     Route: 048
     Dates: start: 20110901, end: 20110929

REACTIONS (4)
  - DYSSTASIA [None]
  - MESENTERIC OCCLUSION [None]
  - LERICHE SYNDROME [None]
  - PAIN [None]
